FAERS Safety Report 14376950 (Version 1)
Quarter: 2018Q1

REPORT INFORMATION
  Report Type: Spontaneous
  Country: US (occurrence: US)
  Receive Date: 20180111
  Receipt Date: 20180111
  Transmission Date: 20180509
  Serious: No
  Sender: FDA-Public Use
  Company Number: US-ALLERGAN-1708126US

PATIENT
  Sex: Female

DRUGS (2)
  1. ALORA [Suspect]
     Active Substance: ESTRADIOL
     Indication: MENOPAUSAL SYMPTOMS
     Dosage: 0.075 GM, SINGLE
     Route: 062
     Dates: start: 20170220, end: 20170221
  2. ALORA [Suspect]
     Active Substance: ESTRADIOL
     Dosage: 0.075 MG, SINGLE
     Route: 062
     Dates: start: 20170220, end: 20170221

REACTIONS (2)
  - Product adhesion issue [Unknown]
  - Drug ineffective [Unknown]

NARRATIVE: CASE EVENT DATE: 20170220
